FAERS Safety Report 8429846-X (Version None)
Quarter: 2012Q2

REPORT INFORMATION
  Report Type: 
  Country: None (occurrence: None)
  Receive Date: 20120612
  Receipt Date: 20120607
  Transmission Date: 20120825
  Serious: Yes (Other)
  Sender: FDA-Public Use
  Company Number: CA-ABBOTT-11P-028-0886434-00

PATIENT
  Sex: Female
  Weight: 63.1 kg

DRUGS (1)
  1. HUMIRA [Suspect]
     Indication: CROHN'S DISEASE
     Route: 058
     Dates: start: 20110418, end: 20111214

REACTIONS (7)
  - HEADACHE [None]
  - RENAL IMPAIRMENT [None]
  - RENAL FAILURE [None]
  - MALAISE [None]
  - HYPERTENSION [None]
  - BLOOD POTASSIUM INCREASED [None]
  - BLOOD CREATININE INCREASED [None]
